FAERS Safety Report 4285235-3 (Version None)
Quarter: 2004Q1

REPORT INFORMATION
  Report Type: 
  Country: None (occurrence: None)
  Receive Date: 20040203
  Receipt Date: 20040203
  Transmission Date: 20041129
  Serious: Yes (Hospitalization)
  Sender: FDA-Public Use
  Company Number: None

PATIENT
  Sex: Male

DRUGS (5)
  1. ASPIRIN [Suspect]
     Dosage: 81 MG PO
     Route: 048
  2. RANITIDINE [Concomitant]
  3. RISPERDAL [Concomitant]
  4. METOPROLOL TARTRATE [Concomitant]
  5. MILK OF MAGNESIA TAB [Concomitant]

REACTIONS (9)
  - ABDOMINAL DISCOMFORT [None]
  - FAECES DISCOLOURED [None]
  - GASTRIC LAVAGE ABNORMAL [None]
  - GINGIVAL BLEEDING [None]
  - INCREASED TENDENCY TO BRUISE [None]
  - NAUSEA [None]
  - PARANOIA [None]
  - THROMBOSIS [None]
  - VOMITING [None]
